FAERS Safety Report 18110459 (Version 1)
Quarter: 2020Q3

REPORT INFORMATION
  Report Type: Spontaneous
  Country: ES (occurrence: ES)
  Receive Date: 20200804
  Receipt Date: 20200804
  Transmission Date: 20201103
  Serious: Yes (Other)
  Sender: FDA-Public Use
  Company Number: ES-PFIZER INC-2020292250

PATIENT
  Age: 78 Year
  Sex: Female

DRUGS (8)
  1. FUROSEMID [Concomitant]
     Active Substance: FUROSEMIDE
     Dosage: 40 MG, 1X/DAY
     Route: 048
     Dates: start: 20200612
  2. GABAPENTIN. [Suspect]
     Active Substance: GABAPENTIN
     Indication: NEURALGIA
     Dosage: UNK
     Route: 048
     Dates: start: 20200624, end: 20200626
  3. SIMVASTATIN. [Concomitant]
     Active Substance: SIMVASTATIN
     Indication: TYPE IIA HYPERLIPIDAEMIA
     Dosage: 20 MG, 1X/DAY
     Route: 048
     Dates: start: 20190510
  4. METFORMIN [Concomitant]
     Active Substance: METFORMIN HYDROCHLORIDE
     Indication: TYPE 2 DIABETES MELLITUS
     Dosage: 850 MG, 3X/DAY (EVERY 8H)
     Route: 048
     Dates: start: 20200624
  5. PREDNISONE. [Suspect]
     Active Substance: PREDNISONE
     Indication: BACK PAIN
     Dosage: UNK
     Route: 048
     Dates: start: 20200624, end: 20200626
  6. TRAMADOL. [Suspect]
     Active Substance: TRAMADOL
     Indication: BACK PAIN
     Dosage: 50 MG, 3X/DAY (EVERY 8H)
     Route: 048
     Dates: start: 20200624, end: 20200626
  7. NOCTAMID [Concomitant]
     Active Substance: LORMETAZEPAM
     Dosage: 1 MG, DAILY (EVERY 24H)
     Route: 048
     Dates: start: 20091009
  8. ALENDRONIC ACID [Concomitant]
     Active Substance: ALENDRONIC ACID
     Indication: OSTEOPOROSIS
     Dosage: 70 MG, WEEKLY
     Route: 048
     Dates: start: 20190511

REACTIONS (3)
  - Delirium [Recovered/Resolved]
  - Confusional state [Recovered/Resolved]
  - Agitation [Recovered/Resolved]

NARRATIVE: CASE EVENT DATE: 20200624
